FAERS Safety Report 4535649-9 (Version None)
Quarter: 2004Q4

REPORT INFORMATION
  Report Type: 
  Country: None (occurrence: None)
  Receive Date: 20041222
  Receipt Date: 20041222
  Transmission Date: 20050328
  Serious: Yes (Life-Threatening, Hospitalization, Disabling, Other)
  Sender: FDA-Public Use
  Company Number: None

PATIENT
  Age: 38 Year
  Sex: Male

DRUGS (9)
  1. ABILIFY [Suspect]
     Indication: LOGORRHOEA
     Dosage: PLUS INJECTIONS 2 X A DAY 2001-2004
     Dates: start: 19790101, end: 19970101
  2. ABILIFY [Suspect]
     Indication: SPEECH DISORDER
     Dosage: PLUS INJECTIONS 2 X A DAY 2001-2004
     Dates: start: 19790101, end: 19970101
  3. ZYPREXA [Suspect]
     Indication: LIBIDO INCREASED
     Dosage: 3 X DAY 10/04-PRES
     Dates: start: 19990101, end: 20040101
  4. RISPERDAL [Suspect]
  5. PROLAXIAN 20 MG [Suspect]
  6. DEPAKOTE [Suspect]
  7. SEROQUEL [Suspect]
  8. COGENTIN [Suspect]
  9. OTHERS [Suspect]

REACTIONS (4)
  - COMA [None]
  - PRESCRIBED OVERDOSE [None]
  - SUICIDE ATTEMPT [None]
  - TOOTH DISORDER [None]
